FAERS Safety Report 5159994-1 (Version None)
Quarter: 2006Q4

REPORT INFORMATION
  Report Type: 
  Country: None (occurrence: None)
  Receive Date: 20061129
  Receipt Date: 20060526
  Transmission Date: 20070319
  Serious: No
  Sender: FDA-Public Use
  Company Number: US-GLAXOSMITHKLINE-A0607097A

PATIENT
  Sex: Male

DRUGS (3)
  1. WELLBUTRIN SR [Suspect]
     Dosage: 200MG TWICE PER DAY
     Route: 048
  2. SEROQUEL [Concomitant]
  3. DEPAKOTE [Concomitant]

REACTIONS (1)
  - SOMNOLENCE [None]
